FAERS Safety Report 14007920 (Version 1)
Quarter: 2017Q3

REPORT INFORMATION
  Report Type: Spontaneous
  Country: US (occurrence: None)
  Receive Date: 20170925
  Receipt Date: 20170925
  Transmission Date: 20171128
  Serious: No
  Sender: FDA-Public Use
  Company Number: None

PATIENT
  Age: 67 Year
  Sex: Female
  Weight: 68.04 kg

DRUGS (5)
  1. ASA [Concomitant]
     Active Substance: ASPIRIN
  2. CRANBERRY EXT [Concomitant]
  3. NGLOCONATE [Concomitant]
  4. D-MANNOSE [Concomitant]
  5. FOSAMAX [Suspect]
     Active Substance: ALENDRONATE SODIUM
     Indication: OSTEOPOROSIS
     Route: 048
     Dates: start: 20110601, end: 20111115

REACTIONS (3)
  - Anxiety [None]
  - Malaise [None]
  - Arthralgia [None]

NARRATIVE: CASE EVENT DATE: 20110601
